FAERS Safety Report 11942366 (Version 1)
Quarter: 2016Q1

REPORT INFORMATION
  Report Type: Spontaneous
  Country: US (occurrence: US)
  Receive Date: 20160125
  Receipt Date: 20160125
  Transmission Date: 20160526
  Serious: No
  Sender: FDA-Public Use
  Company Number: US-ASTRAZENECA-2016SE03798

PATIENT
  Sex: Female
  Weight: 56.7 kg

DRUGS (4)
  1. MOVANTIK [Suspect]
     Active Substance: NALOXEGOL OXALATE
     Indication: CONSTIPATION
     Route: 048
     Dates: start: 20160112
  2. TYLENOL [Concomitant]
     Active Substance: ACETAMINOPHEN
     Indication: PAIN
  3. TYLENOL [Concomitant]
     Active Substance: ACETAMINOPHEN
     Indication: SWELLING
  4. DILAUDIN [Concomitant]
     Indication: PAIN
     Dosage: 4 TO 6 MG
     Route: 048
     Dates: start: 20160107

REACTIONS (3)
  - Faecaloma [Unknown]
  - Constipation [Unknown]
  - Drug ineffective [Unknown]
